FAERS Safety Report 14207933 (Version 2)
Quarter: 2018Q1

REPORT INFORMATION
  Report Type: Spontaneous
  Country: US (occurrence: US)
  Receive Date: 20171121
  Receipt Date: 20180125
  Transmission Date: 20180508
  Serious: Yes (Disabling)
  Sender: FDA-Public Use
  Company Number: US-TARO PHARMACEUTICALS USA.,INC-2017SUN00392

PATIENT
  Age: 36 Year
  Sex: Male

DRUGS (1)
  1. TECHNETIUM TC-99M MEBROFENIN KIT [Suspect]
     Active Substance: TECHNETIUM TC-99M MEBROFENIN
     Indication: ABDOMINAL PAIN
     Dosage: 5.2 MCI, OD
     Route: 042
     Dates: start: 20171019, end: 20171019

REACTIONS (11)
  - Coordination abnormal [Not Recovered/Not Resolved]
  - Confusional state [Not Recovered/Not Resolved]
  - Lethargy [Not Recovered/Not Resolved]
  - Muscular weakness [Not Recovered/Not Resolved]
  - Tinnitus [Not Recovered/Not Resolved]
  - Disorientation [Not Recovered/Not Resolved]
  - Balance disorder [Not Recovered/Not Resolved]
  - Paraesthesia [Not Recovered/Not Resolved]
  - Dizziness [Not Recovered/Not Resolved]
  - Impaired work ability [Not Recovered/Not Resolved]
  - Disturbance in attention [Not Recovered/Not Resolved]

NARRATIVE: CASE EVENT DATE: 20171019
